FAERS Safety Report 21047488 (Version 1)
Quarter: 2022Q3

REPORT INFORMATION
  Report Type: Spontaneous
  Country: CA (occurrence: CA)
  Receive Date: 20220706
  Receipt Date: 20220706
  Transmission Date: 20221026
  Serious: Yes (Death, Hospitalization)
  Sender: FDA-Public Use
  Company Number: CA-SAMSUNG BIOEPIS-SB-2022-16321

PATIENT
  Age: 68 Year
  Sex: Male
  Weight: 78 kg

DRUGS (2)
  1. INFLIXIMAB [Suspect]
     Active Substance: INFLIXIMAB
     Indication: Colitis ulcerative
     Route: 042
  2. MESALAMINE [Concomitant]
     Active Substance: MESALAMINE
     Indication: Product used for unknown indication
     Dosage: DELAYED AND EXTENDED RELEASE/UNKNOWN/ALSO KNOWN AS MESALAMINE
     Route: 065

REACTIONS (8)
  - Death [Fatal]
  - Cardiac disorder [Fatal]
  - Condition aggravated [Fatal]
  - Mobility decreased [Fatal]
  - Speech disorder [Fatal]
  - Loss of personal independence in daily activities [Fatal]
  - Inappropriate schedule of product administration [Fatal]
  - Off label use [Fatal]
